FAERS Safety Report 7335176-X (Version None)
Quarter: 2011Q1

REPORT INFORMATION
  Report Type: 
  Country: None (occurrence: None)
  Receive Date: 20110307
  Receipt Date: 20110228
  Transmission Date: 20110831
  Serious: Yes (Death, Life-Threatening)
  Sender: FDA-Public Use
  Company Number: DE-JNJFOC-20110208219

PATIENT
  Age: 84 Year
  Sex: Male
  Weight: 51 kg

DRUGS (8)
  1. JONOSTERIL S [Suspect]
     Indication: PRODUCT USED FOR UNKNOWN INDICATION
     Route: 042
     Dates: start: 20100519
  2. RISPERDAL [Suspect]
     Indication: PRODUCT USED FOR UNKNOWN INDICATION
     Route: 048
     Dates: start: 20100520
  3. RISPERDAL [Suspect]
     Route: 048
     Dates: start: 20100520
  4. FERRO SANOL [Concomitant]
     Route: 048
     Dates: start: 20100519
  5. NOVAMINSULFON [Concomitant]
     Route: 048
     Dates: start: 20100519
  6. FUROSEMID [Concomitant]
     Route: 048
  7. FUROSEMID [Concomitant]
     Route: 048
  8. RISPERDAL [Suspect]
     Route: 048
     Dates: start: 20100520

REACTIONS (9)
  - DELIRIUM [None]
  - AGGRESSION [None]
  - CREPITATIONS [None]
  - OEDEMA PERIPHERAL [None]
  - DISTURBANCE IN SOCIAL BEHAVIOUR [None]
  - RESTLESSNESS [None]
  - DEATH [None]
  - GENERAL PHYSICAL HEALTH DETERIORATION [None]
  - DYSPNOEA [None]
